FAERS Safety Report 20214577 (Version 3)
Quarter: 2022Q2

REPORT INFORMATION
  Report Type: Report from Study
  Country: US (occurrence: US)
  Receive Date: 20211221
  Receipt Date: 20220402
  Transmission Date: 20220720
  Serious: Yes (Hospitalization)
  Sender: FDA-Public Use
  Company Number: US-ABBVIE-21K-163-4157965-00

PATIENT
  Age: 60 Year
  Sex: Female

DRUGS (3)
  1. HUMIRA [Suspect]
     Active Substance: ADALIMUMAB
     Indication: Rheumatoid arthritis
     Route: 058
  2. MODERNA COVID-19 VACCINE [Concomitant]
     Active Substance: ELASOMERAN
     Indication: COVID-19 immunisation
     Dosage: FIRST DOSE
     Route: 030
     Dates: start: 20211201, end: 20211201
  3. MODERNA COVID-19 VACCINE [Concomitant]
     Active Substance: ELASOMERAN
     Dosage: SECOND DOSE
     Route: 030
     Dates: start: 20211229, end: 20211229

REACTIONS (12)
  - Epistaxis [Recovered/Resolved]
  - COVID-19 [Not Recovered/Not Resolved]
  - Blood pressure abnormal [Unknown]
  - Osteoporosis [Unknown]
  - Amnesia [Unknown]
  - General symptom [Not Recovered/Not Resolved]
  - Depression [Unknown]
  - Arthropathy [Unknown]
  - Unevaluable event [Unknown]
  - Pain in extremity [Unknown]
  - Arthralgia [Unknown]
  - Alopecia [Unknown]

NARRATIVE: CASE EVENT DATE: 20210901
